FAERS Safety Report 24238861 (Version 1)
Quarter: 2024Q3

REPORT INFORMATION
  Report Type: Spontaneous
  Country: CN (occurrence: CN)
  Receive Date: 20240822
  Receipt Date: 20240822
  Transmission Date: 20241016
  Serious: Yes (Hospitalization)
  Sender: MERCK
  Company Number: CN-009507513-2408CHN007022

PATIENT
  Age: 71 Year
  Sex: Male

DRUGS (3)
  1. KEYTRUDA [Suspect]
     Active Substance: PEMBROLIZUMAB
     Indication: Oesophageal carcinoma
     Dosage: 200 MG, ONCE (ALSO REPORTED AS Q3W, 21 DAYS 1 CYCLE)
     Route: 041
     Dates: start: 20240105, end: 20240105
  2. PACLITAXEL [Suspect]
     Active Substance: PACLITAXEL
     Indication: Oesophageal carcinoma
     Dosage: 240 MG, ONCE (D1)
     Route: 041
     Dates: start: 20240105, end: 20240105
  3. CISPLATIN [Suspect]
     Active Substance: CISPLATIN
     Indication: Oesophageal carcinoma
     Dosage: 45 MG, QD (D1-D3)
     Route: 041
     Dates: start: 20240105, end: 20240107

REACTIONS (3)
  - White blood cell count decreased [Recovering/Resolving]
  - Neutrophil count decreased [Recovering/Resolving]
  - Product use issue [Unknown]

NARRATIVE: CASE EVENT DATE: 20240109
